FAERS Safety Report 7590329-0 (Version None)
Quarter: 2011Q3

REPORT INFORMATION
  Report Type: 
  Country: None (occurrence: None)
  Receive Date: 20110705
  Receipt Date: 20110629
  Transmission Date: 20111222
  Serious: Yes (Hospitalization)
  Sender: FDA-Public Use
  Company Number: PL-BAYER-2011-056519

PATIENT
  Age: 68 Year
  Sex: Female
  Weight: 70 kg

DRUGS (1)
  1. ULTRAVIST 150 [Suspect]
     Indication: MYOCARDIAL ISCHAEMIA
     Dosage: 100 ML, ONCE
     Route: 022
     Dates: start: 20110621, end: 20110621

REACTIONS (5)
  - COMMUNICATION DISORDER [None]
  - APHASIA [None]
  - ANXIETY [None]
  - CEREBROVASCULAR ACCIDENT [None]
  - AGITATION [None]
